FAERS Safety Report 11080886 (Version 1)
Quarter: 2015Q2

REPORT INFORMATION
  Report Type: Spontaneous
  Country: US (occurrence: None)
  Receive Date: 20150430
  Receipt Date: 20150430
  Transmission Date: 20150821
  Serious: No
  Sender: FDA-Public Use
  Company Number: None

PATIENT
  Sex: Female
  Weight: 88.45 kg

DRUGS (2)
  1. DEXTROSTAT [Suspect]
     Active Substance: DEXTROAMPHETAMINE SULFATE
     Route: 048
     Dates: start: 20040102, end: 20040511
  2. METHYLPHENIDATE [Suspect]
     Active Substance: METHYLPHENIDATE
     Dosage: THERAPY ?1/26/10-12/16/04
     Route: 048
     Dates: end: 20041216

REACTIONS (1)
  - Migraine [None]
